FAERS Safety Report 5414890-7 (Version None)
Quarter: 2007Q3

REPORT INFORMATION
  Report Type: 
  Country: None (occurrence: None)
  Receive Date: 20070813
  Receipt Date: 20070803
  Transmission Date: 20080115
  Serious: Yes (Hospitalization, Other)
  Sender: FDA-Public Use
  Company Number: 2006-02-1118

PATIENT
  Age: 36 Year
  Sex: Female

DRUGS (4)
  1. DESLORATADINE [Suspect]
     Indication: HYPERSENSITIVITY
     Dosage: 10 MG; QD; PO
     Route: 048
  2. SOLU-DECORTIN-H (PREDNISOLONE) [Concomitant]
  3. DECORTIN [Concomitant]
  4. TAVEGIL [Concomitant]

REACTIONS (9)
  - ASPARTATE AMINOTRANSFERASE INCREASED [None]
  - ASTHMA [None]
  - BLOOD LACTATE DEHYDROGENASE INCREASED [None]
  - DRUG TOXICITY [None]
  - FOOD ALLERGY [None]
  - GAMMA-GLUTAMYLTRANSFERASE INCREASED [None]
  - HYPERSENSITIVITY [None]
  - LIVER DISORDER [None]
  - SKIN REACTION [None]
